FAERS Safety Report 8908097 (Version 1)
Quarter: 2012Q4

REPORT INFORMATION
  Report Type: 
  Country: US (occurrence: US)
  Receive Date: 20121113
  Receipt Date: 20121113
  Transmission Date: 20130627
  Serious: No
  Sender: FDA-Public Use
  Company Number: US-PFIZER INC-2012283063

PATIENT
  Sex: Female

DRUGS (4)
  1. DILANTIN-125 [Suspect]
  2. ZOLOFT [Suspect]
  3. HALDOL [Suspect]
  4. CELEXA [Suspect]

REACTIONS (1)
  - Drug hypersensitivity [Unknown]
